FAERS Safety Report 10710391 (Version 1)
Quarter: 2015Q1

REPORT INFORMATION
  Report Type: Spontaneous
  Country: US (occurrence: US)
  Receive Date: 20150114
  Receipt Date: 20150114
  Transmission Date: 20150721
  Serious: Yes (Death)
  Sender: FDA-Public Use
  Company Number: US-PFIZER INC-2015010058

PATIENT
  Age: 43 Year
  Sex: Female

DRUGS (9)
  1. TOPIRAMATE. [Suspect]
     Active Substance: TOPIRAMATE
  2. LEVOTHYROXINE SODIUM. [Suspect]
     Active Substance: LEVOTHYROXINE SODIUM
  3. OMEPRAZOLE. [Suspect]
     Active Substance: OMEPRAZOLE
  4. CARVEDILOL. [Suspect]
     Active Substance: CARVEDILOL
  5. RISPERIDONE. [Suspect]
     Active Substance: RISPERIDONE
  6. PRAMIPEXOLE [Suspect]
     Active Substance: PRAMIPEXOLE
  7. CITALOPRAM [Suspect]
     Active Substance: CITALOPRAM HYDROBROMIDE
  8. PRAVASTATIN [Suspect]
     Active Substance: PRAVASTATIN\PRAVASTATIN SODIUM
  9. AMLODIPINE BESILATE [Suspect]
     Active Substance: AMLODIPINE BESYLATE

REACTIONS (1)
  - Completed suicide [Fatal]

NARRATIVE: CASE EVENT DATE: 2013
